FAERS Safety Report 6313310-8 (Version None)
Quarter: 2009Q3

REPORT INFORMATION
  Report Type: 
  Country: None (occurrence: None)
  Receive Date: 20090818
  Receipt Date: 20090810
  Transmission Date: 20100115
  Serious: Yes (Other)
  Sender: FDA-Public Use
  Company Number: A0802372A

PATIENT
  Sex: Female

DRUGS (2)
  1. REQUIP XL [Suspect]
     Indication: DRUG USE FOR UNKNOWN INDICATION
     Dosage: 2MG SINGLE DOSE
     Route: 048
     Dates: start: 20090625, end: 20090625
  2. NO CONCURRENT MEDICATIONS [Concomitant]

REACTIONS (7)
  - ABDOMINAL DISCOMFORT [None]
  - ADVERSE DRUG REACTION [None]
  - DIZZINESS [None]
  - EYE ROLLING [None]
  - ILL-DEFINED DISORDER [None]
  - RESPIRATORY ARREST [None]
  - TREMOR [None]
